FAERS Safety Report 15314783 (Version 1)
Quarter: 2018Q3

REPORT INFORMATION
  Report Type: Spontaneous
  Country: CZ (occurrence: CZ)
  Receive Date: 20180815
  Receipt Date: 20180815
  Transmission Date: 20181010
  Serious: Yes (Hospitalization, Other)
  Sender: FDA-Public Use
  Company Number: None

PATIENT
  Age: 29 Year
  Sex: Female
  Weight: 62 kg

DRUGS (3)
  1. OFLOXACIN. [Suspect]
     Active Substance: OFLOXACIN
     Indication: URINARY TRACT INFECTION
     Dosage: ?          QUANTITY:1 TABLET(S);?
     Route: 048
     Dates: start: 20180611, end: 20180614
  2. ALGIFEN [Concomitant]
  3. NOVALGIN (METAMIZOLE SODIUM) [Concomitant]
     Active Substance: METAMIZOLE SODIUM

REACTIONS (11)
  - Gingivitis [None]
  - Loss of consciousness [None]
  - Hepatic pain [None]
  - Urinary tract disorder [None]
  - Abdominal pain upper [None]
  - Diarrhoea haemorrhagic [None]
  - White blood cell count increased [None]
  - Eye irritation [None]
  - Epistaxis [None]
  - Colitis [None]
  - Vomiting [None]

NARRATIVE: CASE EVENT DATE: 20180614
